FAERS Safety Report 17093740 (Version 2)
Quarter: 2021Q4

REPORT INFORMATION
  Report Type: Spontaneous
  Country: BE (occurrence: BE)
  Receive Date: 20191129
  Receipt Date: 20211229
  Transmission Date: 20220303
  Serious: Yes (Death)
  Sender: FDA-Public Use
  Company Number: BE-NOVARTISPH-NVSC2019BE052389

PATIENT
  Age: 51 Year
  Sex: Male

DRUGS (2)
  1. VORICONAZOLE [Suspect]
     Active Substance: VORICONAZOLE
     Indication: Aspergillus infection
     Dosage: UNK
     Route: 065
  2. ANIDULAFUNGIN [Concomitant]
     Active Substance: ANIDULAFUNGIN
     Indication: Aspergillus infection
     Dosage: UNK
     Route: 065

REACTIONS (1)
  - Drug resistance [Fatal]
